FAERS Safety Report 14010105 (Version 2)
Quarter: 2018Q1

REPORT INFORMATION
  Report Type: Report from Study
  Country: US (occurrence: US)
  Receive Date: 20170926
  Receipt Date: 20180315
  Transmission Date: 20180508
  Serious: Yes (Other)
  Sender: FDA-Public Use
  Company Number: US-AMGEN-USASL2017142981

PATIENT
  Age: 62 Year
  Sex: Female

DRUGS (1)
  1. REPATHA [Suspect]
     Active Substance: EVOLOCUMAB
     Indication: TYPE IIA HYPERLIPIDAEMIA
     Dosage: 140 MG, Q2WK
     Route: 065
     Dates: end: 201802

REACTIONS (13)
  - Oropharyngeal pain [Not Recovered/Not Resolved]
  - Rash [Not Recovered/Not Resolved]
  - Musculoskeletal pain [Recovering/Resolving]
  - Diarrhoea [Unknown]
  - Musculoskeletal stiffness [Recovering/Resolving]
  - Lethargy [Unknown]
  - Injection site pain [Unknown]
  - Muscle fatigue [Unknown]
  - Muscle spasms [Recovered/Resolved]
  - Neck pain [Recovering/Resolving]
  - Scleroderma [Unknown]
  - Sinusitis [Not Recovered/Not Resolved]
  - Myalgia [Recovering/Resolving]
